FAERS Safety Report 6984033-7 (Version None)
Quarter: 2010Q3

REPORT INFORMATION
  Report Type: 
  Country: None (occurrence: None)
  Receive Date: 20100915
  Receipt Date: 20090514
  Transmission Date: 20110219
  Serious: No
  Sender: FDA-Public Use
  Company Number: US-WYE-H09373009

PATIENT
  Age: 66 Year
  Sex: Female

DRUGS (2)
  1. ADVIL LIQUI-GELS [Suspect]
     Indication: ARTHRALGIA
     Dosage: 1 LIQUI-GEL AS NEEDED
     Route: 048
     Dates: start: 20080101
  2. HOMEOPATIC PREPARATION [Concomitant]

REACTIONS (1)
  - REBOUND EFFECT [None]
